FAERS Safety Report 4730257-9 (Version None)
Quarter: 2005Q3

REPORT INFORMATION
  Report Type: 
  Country: None (occurrence: None)
  Receive Date: 20050801
  Receipt Date: 20050427
  Transmission Date: 20060218
  Serious: Yes (Death)
  Sender: FDA-Public Use
  Company Number: CA-ROCHE-403245

PATIENT
  Age: 20 Year
  Sex: Male
  Weight: 59 kg

DRUGS (1)
  1. ACCUTANE [Suspect]
     Indication: ACNE
     Dosage: STRENGTH: 40MG AND 10MG.
     Route: 048
     Dates: start: 20050113, end: 20050415

REACTIONS (1)
  - COMPLETED SUICIDE [None]
